FAERS Safety Report 9450152 (Version 1)
Quarter: 2013Q3

REPORT INFORMATION
  Report Type: Spontaneous
  Country: US (occurrence: US)
  Receive Date: 20130809
  Receipt Date: 20130809
  Transmission Date: 20140515
  Serious: No
  Sender: FDA-Public Use
  Company Number: US-GLAXOSMITHKLINE-A0996709A

PATIENT
  Age: 49 Year
  Sex: Female

DRUGS (1)
  1. REQUIP XL [Suspect]
     Indication: PRODUCT USED FOR UNKNOWN INDICATION
     Dosage: 8MG UNKNOWN
     Dates: start: 20120810

REACTIONS (3)
  - Drug effect increased [Unknown]
  - Wrong technique in drug usage process [Unknown]
  - Medication error [Unknown]
